FAERS Safety Report 5287267-5 (Version None)
Quarter: 2007Q2

REPORT INFORMATION
  Report Type: 
  Country: None (occurrence: None)
  Receive Date: 20070404
  Receipt Date: 20070323
  Transmission Date: 20071010
  Serious: Yes (Other)
  Sender: FDA-Public Use
  Company Number: US-PFIZER INC-2007024530

PATIENT
  Age: 49 Year
  Sex: Female

DRUGS (6)
  1. CHANTIX [Suspect]
     Indication: EX-SMOKER
  2. LEXAPRO [Suspect]
     Indication: DEPRESSION
  3. ALBUTEROL [Concomitant]
  4. LASIX [Concomitant]
  5. ADVAIR DISKUS 100/50 [Concomitant]
  6. DUONEB [Concomitant]

REACTIONS (4)
  - EAR DISCOMFORT [None]
  - EYE SWELLING [None]
  - PRURITUS [None]
  - URTICARIA [None]
